FAERS Safety Report 21452853 (Version 2)
Quarter: 2023Q1

REPORT INFORMATION
  Report Type: Spontaneous
  Country: US (occurrence: None)
  Receive Date: 20221013
  Receipt Date: 20230216
  Transmission Date: 20230418
  Serious: No
  Sender: FDA-Public Use
  Company Number: US-ROCHE-3194339

PATIENT
  Age: 60 Year

DRUGS (1)
  1. OCREVUS [Suspect]
     Active Substance: OCRELIZUMAB
     Indication: Primary progressive multiple sclerosis
     Route: 065
     Dates: start: 2019

REACTIONS (7)
  - Escherichia urinary tract infection [Unknown]
  - Malabsorption [Unknown]
  - Weight decreased [Unknown]
  - Investigation abnormal [Unknown]
  - Diarrhoea [Unknown]
  - Ill-defined disorder [Unknown]
  - Dyspepsia [Unknown]

NARRATIVE: CASE EVENT DATE: 20210728
